FAERS Safety Report 19967793 (Version 3)
Quarter: 2022Q3

REPORT INFORMATION
  Report Type: Spontaneous
  Country: US (occurrence: US)
  Receive Date: 20211019
  Receipt Date: 20220707
  Transmission Date: 20221027
  Serious: No
  Sender: FDA-Public Use
  Company Number: US-BRISTOL-MYERS SQUIBB COMPANY-BMS-2021-107688

PATIENT
  Age: 52 Year
  Sex: Female

DRUGS (2)
  1. ORENCIA [Suspect]
     Active Substance: ABATACEPT
     Indication: Rheumatoid arthritis
     Dosage: 750 MILLIGRAM, Q4WK
     Route: 042
     Dates: start: 202107
  2. ORENCIA [Suspect]
     Active Substance: ABATACEPT
     Dosage: 250 MG/VL
     Route: 042
     Dates: start: 20210528

REACTIONS (4)
  - Myalgia [Unknown]
  - Anxiety [Unknown]
  - Hypoaesthesia [Unknown]
  - Pain in extremity [Unknown]

NARRATIVE: CASE EVENT DATE: 20220601
